FAERS Safety Report 4752782-7 (Version None)
Quarter: 2005Q3

REPORT INFORMATION
  Report Type: 
  Country: None (occurrence: None)
  Receive Date: 20050823
  Receipt Date: 20050224
  Transmission Date: 20060218
  Serious: Yes (Hospitalization, Other)
  Sender: FDA-Public Use
  Company Number: 2005015134

PATIENT
  Age: 69 Year
  Sex: Female
  Weight: 77.1 kg

DRUGS (19)
  1. NORVASC [Suspect]
     Indication: ILL-DEFINED DISORDER
     Dosage: 10 MG (ONCE A DAY),ORAL
     Route: 048
     Dates: start: 20041028, end: 20041118
  2. CELECOXIB (CELECOXIB) [Concomitant]
  3. LOSARTAN POTASSIUM [Concomitant]
  4. SERTRALINE HCL [Concomitant]
  5. CLOPIDOGREL BISULFATE [Concomitant]
  6. INSULIN (INSULIN) [Concomitant]
  7. ACETYLSALICYLIC ACID SRT [Concomitant]
  8. GLUCAGON [Concomitant]
  9. MULTIVITAMIN ^LAPPE^ (VITAMINS NOS) [Concomitant]
  10. EZETIMIBE (EZETIMIBE) [Concomitant]
  11. GLUCOSAMINE (GLUCOSAMINE) [Concomitant]
  12. GABAPENTIN [Concomitant]
  13. ISOSORBIDE MONONITRATE [Concomitant]
  14. FENOFIBRATE [Concomitant]
  15. PRAVASTATIN [Concomitant]
  16. HYDROCHLOROTHIAZIDE [Concomitant]
  17. GLYCERYL TRINITRATE (GLYCERYL TRINITRATE) [Concomitant]
  18. LANSOPRAZOLE [Concomitant]
  19. METOPROLOL TARTRATE [Concomitant]

REACTIONS (2)
  - DRUG ADMINISTRATION ERROR [None]
  - MYOCARDIAL INFARCTION [None]
